FAERS Safety Report 6975788-6 (Version None)
Quarter: 2010Q3

REPORT INFORMATION
  Report Type: 
  Country: None (occurrence: None)
  Receive Date: 20100824
  Receipt Date: 20100706
  Transmission Date: 20110219
  Serious: No
  Sender: FDA-Public Use
  Company Number: 311108

PATIENT
  Sex: Male

DRUGS (1)
  1. VICTOZA [Suspect]
     Indication: PRODUCT USED FOR UNKNOWN INDICATION
     Dosage: 1.2MG QD, SUBCUTANEOUS; 0.6MG, QD, SUBCUTANEOUS
     Route: 058

REACTIONS (1)
  - INJECTION SITE RASH [None]
